FAERS Safety Report 7217821-2 (Version None)
Quarter: 2011Q1

REPORT INFORMATION
  Report Type: 
  Country: None (occurrence: None)
  Receive Date: 20110110
  Receipt Date: 20110105
  Transmission Date: 20110831
  Serious: Yes (Life-Threatening, Hospitalization)
  Sender: FDA-Public Use
  Company Number: US-B.I. PHARMACEUTICALS,INC./RIDGEFIELD-2011-BP-00263BP

PATIENT
  Age: 62 Year
  Sex: Female

DRUGS (12)
  1. FLAXSEED [Concomitant]
     Route: 048
  2. NASONEX [Concomitant]
     Dosage: 50 MCG
  3. CALCIUM/VITAMIN D [Concomitant]
     Dosage: 500 MG
     Route: 048
  4. LOVASTATIN [Concomitant]
     Dosage: 20 MG
     Route: 048
  5. PRADAXA [Suspect]
     Indication: ATRIAL FIBRILLATION
     Dosage: 300 MG
     Route: 048
     Dates: start: 20101224
  6. MULTI-VITAMIN [Concomitant]
     Route: 048
  7. METAMUCIL-2 [Concomitant]
     Route: 048
  8. EVISTA [Concomitant]
     Dosage: 60 MG
     Route: 048
  9. AMITRIPTYLINE [Concomitant]
     Dosage: 25 MG
     Route: 048
  10. ASPIRIN [Concomitant]
     Dosage: 325 MG
     Route: 048
  11. KLOR-CON [Concomitant]
     Dosage: 20 MEQ
     Route: 048
  12. HYDROCHLOROTHIAZIDE [Concomitant]
     Dosage: 25 MG
     Route: 048

REACTIONS (4)
  - PERIPHERAL EMBOLISM [None]
  - CEREBROVASCULAR ACCIDENT [None]
  - CEREBRAL ARTERY EMBOLISM [None]
  - ISCHAEMIC STROKE [None]
